FAERS Safety Report 8135618-6 (Version None)
Quarter: 2012Q1

REPORT INFORMATION
  Report Type: 
  Country: None (occurrence: None)
  Receive Date: 20120214
  Receipt Date: 20120207
  Transmission Date: 20120608
  Serious: Yes (Hospitalization)
  Sender: FDA-Public Use
  Company Number: PHHO2012NL002300

PATIENT
  Sex: Male
  Weight: 101 kg

DRUGS (12)
  1. MYFORTIC [Suspect]
     Dosage: NO TREATMENT RECEIVED
     Dates: start: 20111130, end: 20111206
  2. NEXIUM [Concomitant]
     Indication: PROPHYLAXIS
     Dosage: 20 MG, UNK
     Dates: start: 20110729
  3. CERTICAN [Suspect]
     Indication: RENAL TRANSPLANT
     Dosage: 6 MG, UNK
     Dates: start: 20110930
  4. MYFORTIC [Suspect]
     Dosage: 720 MG, UNK
  5. COTRIM [Concomitant]
     Indication: PROPHYLAXIS
     Dosage: 480 MG, UNK
     Dates: start: 20110729
  6. NIFEDIPINE [Concomitant]
     Dosage: 30 MG, UNK
     Dates: start: 19880101
  7. SIMVASTATIN [Concomitant]
     Dosage: 20 MG, UNK
     Dates: start: 20110729
  8. GLIMEPIRIDE [Concomitant]
     Dosage: 2 MG, UNK
     Dates: start: 20110729
  9. MYFORTIC [Suspect]
     Indication: RENAL TRANSPLANT
     Dosage: 360 MG, UNK
     Dates: start: 20110729, end: 20111129
  10. OMEPRAZOLE [Concomitant]
     Indication: PROPHYLAXIS
     Dosage: 20 MG, UNK
     Dates: start: 20110729
  11. METOCLOPRAMIDE [Concomitant]
     Dosage: 50 MG, UNK
     Dates: start: 20110729
  12. PREDNISONE TAB [Concomitant]
     Dosage: 10 MG, UNK
     Dates: start: 20110709

REACTIONS (3)
  - DIABETES MELLITUS [None]
  - DIARRHOEA [None]
  - MALAISE [None]
